FAERS Safety Report 6430827-6 (Version None)
Quarter: 2009Q4

REPORT INFORMATION
  Report Type: 
  Country: None (occurrence: None)
  Receive Date: 20091106
  Receipt Date: 20091028
  Transmission Date: 20100525
  Serious: Yes (Other)
  Sender: FDA-Public Use
  Company Number: GXKR2009GB11816

PATIENT
  Age: 6 Month
  Sex: Male

DRUGS (1)
  1. HYDROCORTISONE [Suspect]
     Indication: DERMATITIS ATOPIC
     Dosage: 1 DF, BID PRN
     Route: 061
     Dates: start: 20091006, end: 20091011

REACTIONS (1)
  - RASH GENERALISED [None]
